FAERS Safety Report 6885044-2 (Version None)
Quarter: 2010Q3

REPORT INFORMATION
  Report Type: 
  Country: None (occurrence: None)
  Receive Date: 20100729
  Receipt Date: 20071116
  Transmission Date: 20110219
  Serious: No
  Sender: FDA-Public Use
  Company Number: US-PFIZER INC-2007096590

PATIENT
  Sex: Female

DRUGS (5)
  1. CELEBREX [Suspect]
     Indication: OSTEOARTHRITIS
     Dosage: 200MG
     Route: 048
     Dates: start: 20071112, end: 20071113
  2. PRAVASTATIN [Concomitant]
  3. ENALAPRIL [Concomitant]
  4. ACETYLSALICYLIC ACID SRT [Concomitant]
  5. CHONDROITIN/GLUCOSAMINE [Concomitant]

REACTIONS (5)
  - ABDOMINAL PAIN UPPER [None]
  - EXPIRED DRUG ADMINISTERED [None]
  - IRRITABILITY [None]
  - NAUSEA [None]
  - VOMITING [None]
